FAERS Safety Report 6976872-3 (Version None)
Quarter: 2010Q3

REPORT INFORMATION
  Report Type: 
  Country: None (occurrence: None)
  Receive Date: 20100910
  Receipt Date: 20100819
  Transmission Date: 20110219
  Serious: Yes (Hospitalization)
  Sender: FDA-Public Use
  Company Number: B0671999A

PATIENT
  Sex: Male

DRUGS (3)
  1. REQUIP [Suspect]
     Indication: PARKINSON'S DISEASE
     Dosage: 2MG THREE TIMES PER DAY
     Route: 048
     Dates: start: 20070101, end: 20070901
  2. QUETIAPINE [Concomitant]
  3. CLOZAPINE [Concomitant]

REACTIONS (21)
  - ANXIETY [None]
  - BRAIN CONTUSION [None]
  - CEREBRAL HAEMATOMA [None]
  - DELUSION [None]
  - DEPRESSED MOOD [None]
  - DEPRESSION [None]
  - DISORIENTATION [None]
  - FACIAL BONES FRACTURE [None]
  - FOOT FRACTURE [None]
  - FRACTURE [None]
  - FRACTURED SACRUM [None]
  - HIP FRACTURE [None]
  - INTENTIONAL SELF-INJURY [None]
  - MENTAL DISORDER [None]
  - PELVIC FRACTURE [None]
  - PHOBIA [None]
  - SKIN DISORDER [None]
  - SKULL FRACTURE [None]
  - SUICIDE ATTEMPT [None]
  - TRAUMATIC AMPUTATION [None]
  - TRAUMATIC LIVER INJURY [None]
